FAERS Safety Report 14982623 (Version 2)
Quarter: 2018Q3

REPORT INFORMATION
  Report Type: Spontaneous
  Country: JP (occurrence: JP)
  Receive Date: 20180607
  Receipt Date: 20180717
  Transmission Date: 20181010
  Serious: Yes (Other)
  Sender: FDA-Public Use
  Company Number: PHJP2018JP011991

PATIENT
  Age: 79 Year
  Sex: Female

DRUGS (1)
  1. VOTRIENT [Suspect]
     Active Substance: PAZOPANIB HYDROCHLORIDE
     Indication: PHYLLODES TUMOUR
     Dosage: UNK
     Route: 048
     Dates: start: 201608

REACTIONS (5)
  - Malignant neoplasm progression [Not Recovered/Not Resolved]
  - Phyllodes tumour [Not Recovered/Not Resolved]
  - Dysgeusia [Unknown]
  - Oedema peripheral [Recovered/Resolved]
  - Hyperthyroidism [Recovered/Resolved]

NARRATIVE: CASE EVENT DATE: 201701
